FAERS Safety Report 6615662-8 (Version None)
Quarter: 2010Q1

REPORT INFORMATION
  Report Type: 
  Country: None (occurrence: None)
  Receive Date: 20100305
  Receipt Date: 20100225
  Transmission Date: 20100710
  Serious: Yes (Other)
  Sender: FDA-Public Use
  Company Number: IE-ROCHE-687433

PATIENT
  Sex: Female

DRUGS (4)
  1. ROACCUTANE [Suspect]
     Indication: ACNE
     Route: 048
     Dates: start: 20090901, end: 20090901
  2. ROACCUTANE [Suspect]
     Dosage: DOSE INCREASED
     Route: 048
     Dates: start: 20091001, end: 20091001
  3. ROACCUTANE [Suspect]
     Dosage: DOSE INCREASED
     Route: 048
     Dates: start: 20091101
  4. DIANETTE [Concomitant]
     Dosage: FREQUENCY: OD
     Route: 048
     Dates: start: 20090901

REACTIONS (6)
  - ABDOMINAL DISTENSION [None]
  - ABDOMINAL PAIN UPPER [None]
  - CONSTIPATION [None]
  - DIARRHOEA [None]
  - HAEMATOCHEZIA [None]
  - MUCOUS STOOLS [None]
